FAERS Safety Report 4325685-X (Version None)
Quarter: 2004Q1

REPORT INFORMATION
  Report Type: 
  Country: None (occurrence: None)
  Receive Date: 20040323
  Receipt Date: 20040308
  Transmission Date: 20041129
  Serious: Yes (Death, Hospitalization)
  Sender: FDA-Public Use
  Company Number: 2004-DE-01144GD

PATIENT
  Age: 79 Year
  Sex: Male

DRUGS (2)
  1. PREDNISONE [Suspect]
     Indication: CROHN'S DISEASE
     Dosage: 40 MCG (NR), NR
  2. INFLIXIMAB (INFLIXIMAB) [Suspect]
     Indication: CROHN'S DISEASE
     Dosage: NR (NR), IV
     Route: 042

REACTIONS (2)
  - PNEUMONIA [None]
  - RESPIRATORY FAILURE [None]
